FAERS Safety Report 8437628-8 (Version None)
Quarter: 2012Q2

REPORT INFORMATION
  Report Type: 
  Country: None (occurrence: None)
  Receive Date: 20120614
  Receipt Date: 20120426
  Transmission Date: 20120825
  Serious: No
  Sender: FDA-Public Use
  Company Number: US-AMGEN-USASP2012025203

PATIENT
  Age: 74 Year
  Sex: Female

DRUGS (10)
  1. FUROSEMIDE [Concomitant]
     Dosage: UNK
  2. SPIRONOLACTONE [Concomitant]
     Dosage: 50 MG, TID
  3. VITAMIN B-12 [Concomitant]
     Dosage: 1 MG, Q2WK
  4. PAROXETINE [Concomitant]
     Dosage: UNK
  5. SYNTHROID [Concomitant]
     Dosage: 15 MG, QWK
  6. PROLIA [Suspect]
     Indication: OSTEOPOROSIS POSTMENOPAUSAL
     Dosage: 60 MG, Q6MO
     Dates: start: 20120413
  7. MS CONTIN [Concomitant]
     Dosage: 15 MG, QD
  8. XIFAXAN [Concomitant]
     Dosage: 400 MG, TID
  9. VITAMIN D [Concomitant]
     Dosage: 50000 IU, QWK
  10. LOMOTIL [Concomitant]
     Dosage: UNK

REACTIONS (5)
  - VOMITING [None]
  - DECREASED APPETITE [None]
  - INFLUENZA LIKE ILLNESS [None]
  - DIARRHOEA [None]
  - ANXIETY [None]
